FAERS Safety Report 6185024-9 (Version None)
Quarter: 2009Q2

REPORT INFORMATION
  Report Type: 
  Country: None (occurrence: None)
  Receive Date: 20090511
  Receipt Date: 20090415
  Transmission Date: 20091009
  Serious: No
  Sender: FDA-Public Use
  Company Number: A0778935A

PATIENT
  Age: 76 Year
  Sex: Male

DRUGS (9)
  1. COREG CR [Suspect]
     Dosage: 40MG PER DAY
     Route: 048
     Dates: start: 20090101
  2. LIPITOR [Concomitant]
  3. LOPID [Concomitant]
  4. ENALAPRIL MALEATE [Concomitant]
  5. VITAMIN E [Concomitant]
  6. THERAGRAN M [Concomitant]
  7. ASPIRIN [Concomitant]
  8. ASCORBIC ACID [Concomitant]
  9. FEVER FEW [Concomitant]

REACTIONS (3)
  - DIZZINESS [None]
  - FATIGUE [None]
  - PRURITUS [None]
